FAERS Safety Report 14672969 (Version 5)
Quarter: 2018Q3

REPORT INFORMATION
  Report Type: Spontaneous
  Country: DE (occurrence: DE)
  Receive Date: 20180323
  Receipt Date: 20180912
  Transmission Date: 20181010
  Serious: Yes (Hospitalization, Other)
  Sender: FDA-Public Use
  Company Number: DE-AUROBINDO-AUR-APL-2018-015867

PATIENT
  Age: 15 Year
  Sex: Male
  Weight: 106 kg

DRUGS (21)
  1. PREDNISON [Suspect]
     Active Substance: PREDNISONE
     Indication: STILL^S DISEASE
     Dosage: 7.5 MILLIGRAM
     Route: 065
     Dates: start: 20150428
  2. ROACTEMRA [Suspect]
     Active Substance: TOCILIZUMAB
     Dosage: 640 MG, Q2W
     Route: 042
  3. ARCOXIA [Concomitant]
     Active Substance: ETORICOXIB
     Indication: STILL^S DISEASE
     Dosage: DAILY DOSE: 90 MG MILLGRAM(S) EVERY DAYS
     Route: 065
  4. ETORICOXIB. [Concomitant]
     Active Substance: ETORICOXIB
     Indication: STILL^S DISEASE
     Dosage: 90 MG, QD
     Route: 048
     Dates: start: 20160403
  5. ETORICOXIB. [Concomitant]
     Active Substance: ETORICOXIB
     Indication: STILL^S DISEASE
     Dosage: UNK
     Route: 048
  6. PERAMPANEL [Concomitant]
     Active Substance: PERAMPANEL
     Indication: STILL^S DISEASE
     Dosage: 8 MILLIGRAM
     Route: 048
     Dates: start: 20160303
  7. FOLSAEURE [Concomitant]
     Active Substance: FOLIC ACID
     Indication: STILL^S DISEASE
     Dosage: 5 MG, UNK
     Route: 048
  8. PANTOPRAZOLE [Suspect]
     Active Substance: PANTOPRAZOLE
     Indication: PROPHYLAXIS
     Dosage: 40 UNK
     Route: 065
     Dates: start: 20150114
  9. OXCARBAZEPIN [Concomitant]
     Active Substance: OXCARBAZEPINE
     Indication: EPILEPSY
     Dosage: 1500 MILLIGRAM
     Route: 048
     Dates: start: 20160908
  10. VOLTAREN [Suspect]
     Active Substance: DICLOFENAC SODIUM
     Indication: STILL^S DISEASE
     Dosage: 100 MG, QD
     Route: 048
     Dates: start: 20141217, end: 20150113
  11. OMEPRAZOL                          /00661201/ [Concomitant]
     Active Substance: OMEPRAZOLE
     Indication: STILL^S DISEASE
     Dosage: UNK
     Route: 048
     Dates: start: 20141217
  12. FOLIC ACID. [Concomitant]
     Active Substance: FOLIC ACID
     Indication: STILL^S DISEASE
     Dosage: 5 MILLIGRAM
     Route: 048
     Dates: start: 20141204
  13. FOLIC ACID. [Concomitant]
     Active Substance: FOLIC ACID
     Indication: STILL^S DISEASE
  14. OXCARBAZEPIN [Concomitant]
     Active Substance: OXCARBAZEPINE
     Dosage: 1200 MILLIGRAM
     Route: 065
     Dates: start: 20160915
  15. TOPIRAMAT [Concomitant]
     Active Substance: TOPIRAMATE
     Indication: EPILEPSY
     Dosage: DAILY DOSE: 200 MG MILLGRAM(S) EVERY DAYS
     Route: 048
  16. METHOTREXATE (METHOTREXATE SODIUM) [Suspect]
     Active Substance: METHOTREXATE SODIUM
     Indication: STILL^S DISEASE
     Dosage: DAILY DOSE: 20 MG MILLGRAM(S) EVERY WEEKS
     Route: 048
     Dates: start: 20141204
  17. ROACTEMRA [Suspect]
     Active Substance: TOCILIZUMAB
     Indication: STILL^S DISEASE
     Dosage: DAILY DOSE: 640 MG MILLGRAM(S) EVERY 2 WEEKS
     Route: 042
     Dates: start: 20150428
  18. ROACTEMRA [Suspect]
     Active Substance: TOCILIZUMAB
     Dosage: DAILY DOSE: 640 MG MILLGRAM(S) EVERY 4 WEEKS
     Route: 042
     Dates: start: 20141217
  19. ETORICOXIB. [Concomitant]
     Active Substance: ETORICOXIB
     Indication: JUVENILE IDIOPATHIC ARTHRITIS
  20. DICLOFENAC [Suspect]
     Active Substance: DICLOFENAC
     Indication: STILL^S DISEASE
     Dosage: DAILY DOSE: 100 MG MILLGRAM(S) EVERY DAYS
     Route: 048
     Dates: start: 20141217, end: 20150113
  21. PANTOPRAZOLE [Suspect]
     Active Substance: PANTOPRAZOLE
     Indication: STILL^S DISEASE
     Dosage: 80 MG, UNK
     Route: 065
     Dates: start: 20141204

REACTIONS (8)
  - Otitis media [Recovered/Resolved]
  - Seizure [Recovered/Resolved]
  - Pneumonia aspiration [Recovered/Resolved]
  - Fall [Unknown]
  - Craniocerebral injury [Unknown]
  - Epilepsy [Recovered/Resolved]
  - Hand fracture [Unknown]
  - Sinusitis [Recovered/Resolved]

NARRATIVE: CASE EVENT DATE: 20150417
